FAERS Safety Report 8277748 (Version 3)
Quarter: 2012Q4

REPORT INFORMATION
  Report Type: Report from Study
  Country: ES (occurrence: ES)
  Receive Date: 20111207
  Receipt Date: 20121011
  Transmission Date: 20130627
  Serious: Yes (Death)
  Sender: FDA-Public Use
  Company Number: ES-CELGENEUS-144-50794-11120279

PATIENT
  Age: 55 Year
  Sex: Female

DRUGS (1)
  1. VIDAZA [Suspect]
     Indication: MDS
     Dosage: 100 milligram/sq. meter
     Route: 058
     Dates: start: 200804, end: 20110916

REACTIONS (1)
  - Myelodysplastic syndrome [Fatal]
